FAERS Safety Report 5867035-3 (Version None)
Quarter: 2008Q3

REPORT INFORMATION
  Report Type: 
  Country: None (occurrence: None)
  Receive Date: 20080902
  Receipt Date: 20080821
  Transmission Date: 20090109
  Serious: Yes (Other)
  Sender: FDA-Public Use
  Company Number: B0396815A

PATIENT

DRUGS (3)
  1. LAMOTRIGINE [Suspect]
  2. TOPAMAX [Suspect]
     Indication: EPILEPSY
  3. KEPPRA [Suspect]

REACTIONS (1)
  - PYLORIC STENOSIS [None]
